FAERS Safety Report 6888309-3 (Version None)
Quarter: 2010Q3

REPORT INFORMATION
  Report Type: 
  Country: None (occurrence: None)
  Receive Date: 20100730
  Receipt Date: 20100716
  Transmission Date: 20110219
  Serious: Yes (Death)
  Sender: FDA-Public Use
  Company Number: JP-PURDUE-MAG-2010-0001300

PATIENT
  Sex: Male

DRUGS (9)
  1. OXYCODONE HCL [Suspect]
     Indication: CANCER PAIN
     Dosage: 160 MG, DAILY
     Route: 048
     Dates: start: 20100619, end: 20100714
  2. DUROTEP [Concomitant]
     Indication: CANCER PAIN
     Dosage: 16.8 MG, DAILY
     Route: 062
     Dates: start: 20100604, end: 20100618
  3. OPSO [Concomitant]
     Indication: CANCER PAIN
     Dosage: 25 MG, DAILY
     Route: 048
     Dates: start: 20100609, end: 20100609
  4. OPSO [Concomitant]
     Dosage: 50 MG, DAILY
     Route: 048
     Dates: start: 20100610, end: 20100614
  5. OPSO [Concomitant]
     Dosage: 30 MG, DAILY
     Route: 048
     Dates: start: 20100615, end: 20100616
  6. OPSO [Concomitant]
     Dosage: 40 MG, DAILY
     Route: 048
     Dates: start: 20100617, end: 20100618
  7. OPSO [Concomitant]
     Dosage: 20 MG, DAILY
     Dates: start: 20100619, end: 20100623
  8. HALCION [Concomitant]
     Dosage: UNK
     Route: 048
     Dates: end: 20100713
  9. YODEL [Concomitant]
     Indication: PROPHYLAXIS
     Dosage: UNK
     Route: 048
     Dates: start: 20100619, end: 20100713

REACTIONS (1)
  - HEPATIC FAILURE [None]
